FAERS Safety Report 15458635 (Version 1)
Quarter: 2018Q3

REPORT INFORMATION
  Report Type: Spontaneous
  Country: US (occurrence: US)
  Receive Date: 20180930
  Receipt Date: 20180930
  Transmission Date: 20181020
  Serious: Yes (Other)
  Sender: FDA-Public Use
  Company Number: None

PATIENT
  Age: 47 Year
  Sex: Female
  Weight: 74.25 kg

DRUGS (5)
  1. STRESS B COMPLEX [Concomitant]
  2. LETROZOLE 2.5 MG SUBST FOR FEMARA F/C ROUND LT [Suspect]
     Active Substance: LETROZOLE
     Indication: BREAST CANCER
     Dosage: ?          QUANTITY:1 TABLET(S);?
     Route: 048
  3. IBRANCE [Concomitant]
     Active Substance: PALBOCICLIB
  4. VAGIFEM [Concomitant]
     Active Substance: ESTRADIOL
  5. POTASSIUM [Concomitant]
     Active Substance: POTASSIUM

REACTIONS (9)
  - Insurance issue [None]
  - Burning sensation [None]
  - Abdominal pain [None]
  - Paraesthesia [None]
  - Product substitution issue [None]
  - Glossodynia [None]
  - Diarrhoea [None]
  - Stomatitis [None]
  - Reaction to excipient [None]

NARRATIVE: CASE EVENT DATE: 20180907
